FAERS Safety Report 21590291 (Version 1)
Quarter: 2022Q4

REPORT INFORMATION
  Report Type: Spontaneous
  Country: US (occurrence: US)
  Receive Date: 20221114
  Receipt Date: 20221114
  Transmission Date: 20230113
  Serious: Yes (Other)
  Sender: FDA-Public Use
  Company Number: US-BIOCODEX2-2022001308

PATIENT
  Sex: Male
  Weight: 15.9 kg

DRUGS (1)
  1. DIACOMIT [Suspect]
     Active Substance: STIRIPENTOL
     Indication: Severe myoclonic epilepsy of infancy
     Dosage: MIX 1 PACKET IN 10ML OF WATER AND DRAW UP 7.5ML (375MG) AND GIVE BY MOUTH TWICE DAILY
     Route: 048
     Dates: end: 20220817

REACTIONS (7)
  - Condition aggravated [Unknown]
  - Lethargy [Unknown]
  - Speech disorder [Unknown]
  - Product preparation issue [Unknown]
  - Product use in unapproved indication [Unknown]
  - Drug ineffective [Unknown]
  - Seizure [Unknown]
